FAERS Safety Report 11950264 (Version 1)
Quarter: 2016Q1

REPORT INFORMATION
  Report Type: Spontaneous
  Country: US (occurrence: US)
  Receive Date: 20160126
  Receipt Date: 20160126
  Transmission Date: 20160526
  Serious: Yes (Other)
  Sender: FDA-Public Use
  Company Number: US-BEH-2016057916

PATIENT
  Sex: Female
  Weight: 67 kg

DRUGS (26)
  1. ZOFRAN [Concomitant]
     Active Substance: ONDANSETRON HYDROCHLORIDE
  2. ZOCOR [Concomitant]
     Active Substance: SIMVASTATIN
  3. OXYCONTIN [Concomitant]
     Active Substance: OXYCODONE HYDROCHLORIDE
  4. SINGULAIR [Concomitant]
     Active Substance: MONTELUKAST SODIUM
  5. HYDROCORTISONE. [Concomitant]
     Active Substance: HYDROCORTISONE
  6. DDAVP [Concomitant]
     Active Substance: DESMOPRESSIN ACETATE
  7. IMITREX [Concomitant]
     Active Substance: SUMATRIPTAN SUCCINATE
  8. ACETAMINOPHEN. [Concomitant]
     Active Substance: ACETAMINOPHEN
  9. DIPHENHYDRAMINE. [Concomitant]
     Active Substance: DIPHENHYDRAMINE
  10. FLONASE [Concomitant]
     Active Substance: FLUTICASONE PROPIONATE
  11. DEXAMETHASONE. [Concomitant]
     Active Substance: DEXAMETHASONE
  12. ACIPHEX ER [Concomitant]
  13. PERCOCET [Concomitant]
     Active Substance: ACETAMINOPHEN\OXYCODONE HYDROCHLORIDE
  14. CYTOMEL [Concomitant]
     Active Substance: LIOTHYRONINE SODIUM
  15. HIZENTRA [Suspect]
     Active Substance: HUMAN IMMUNOGLOBULIN G
     Indication: IMMUNODEFICIENCY COMMON VARIABLE
     Route: 058
  16. SANDOSTATIN [Concomitant]
     Active Substance: OCTREOTIDE ACETATE
  17. NAPROXEN. [Concomitant]
     Active Substance: NAPROXEN
  18. DHEA [Concomitant]
     Active Substance: PRASTERONE
  19. LIDOCAINE. [Concomitant]
     Active Substance: LIDOCAINE
  20. RITALIN [Concomitant]
     Active Substance: METHYLPHENIDATE HYDROCHLORIDE
  21. SUDAFED [Concomitant]
     Active Substance: PSEUDOEPHEDRINE HYDROCHLORIDE
  22. ATENOLOL. [Concomitant]
     Active Substance: ATENOLOL
  23. SYNTHROID [Concomitant]
     Active Substance: LEVOTHYROXINE SODIUM
  24. EPIPEN [Concomitant]
     Active Substance: EPINEPHRINE
  25. MUCINEX ER [Concomitant]
  26. CLARITIN [Concomitant]
     Active Substance: LORATADINE

REACTIONS (1)
  - Staphylococcal infection [Unknown]
